FAERS Safety Report 20066996 (Version 3)
Quarter: 2021Q4

REPORT INFORMATION
  Report Type: Spontaneous
  Country: JP (occurrence: JP)
  Receive Date: 20211115
  Receipt Date: 20211229
  Transmission Date: 20220303
  Serious: Yes (Other)
  Sender: FDA-Public Use
  Company Number: JP-SAKK-00850921

PATIENT
  Age: 28 Year
  Sex: Male

DRUGS (3)
  1. ALLEGRA [Suspect]
     Active Substance: FEXOFENADINE HYDROCHLORIDE
     Indication: Alopecia areata
     Dosage: 60 MG, BID
     Route: 048
     Dates: start: 20210112, end: 20211110
  2. CEPHARANTHINE [Concomitant]
     Active Substance: CEPHARANTHINE
     Indication: Alopecia areata
     Dosage: 2 MG, BID
     Route: 048
     Dates: start: 20210112, end: 20211110
  3. CEPHARANTHINE [Concomitant]
     Active Substance: CEPHARANTHINE
     Indication: Alopecia universalis
     Dosage: 150 MG/DAY
     Route: 048
     Dates: start: 20211110

REACTIONS (3)
  - Alopecia universalis [Not Recovered/Not Resolved]
  - Alopecia [Not Recovered/Not Resolved]
  - Off label use [Unknown]

NARRATIVE: CASE EVENT DATE: 20210101
